FAERS Safety Report 5192485-0 (Version None)
Quarter: 2006Q4

REPORT INFORMATION
  Report Type: 
  Country: None (occurrence: None)
  Receive Date: 20061220
  Receipt Date: 20061207
  Transmission Date: 20070319
  Serious: Yes (Hospitalization)
  Sender: FDA-Public Use
  Company Number: 2006152167

PATIENT
  Age: 69 Year
  Sex: Male
  Weight: 81 kg

DRUGS (9)
  1. SU-011, 248 (SUNITINIB MALATE) [Suspect]
     Indication: METASTATIC RENAL CELL CARCINOMA
     Dosage: 25 MG (25 MG, QD: EVERYDAY), ORAL
     Route: 048
     Dates: start: 20060905, end: 20061002
  2. HEPA-MERZ (ORNITHINE ASPARTATE) [Concomitant]
  3. OMEPRAZOLE [Concomitant]
  4. FUROSEMIDE [Concomitant]
  5. HYZAAR [Concomitant]
  6. NITRENDIPINE (NITRENDIPINE) [Concomitant]
  7. POTASSIUM CHLORIDE [Concomitant]
  8. MILURIT (ALLOPURINOL) [Concomitant]
  9. ATENOLOL [Concomitant]

REACTIONS (3)
  - ABDOMINAL PAIN [None]
  - ALANINE AMINOTRANSFERASE INCREASED [None]
  - ASPARTATE AMINOTRANSFERASE INCREASED [None]
